FAERS Safety Report 9344194 (Version 1)
Quarter: 2013Q2

REPORT INFORMATION
  Report Type: Report from Study
  Country: NL (occurrence: NL)
  Receive Date: 20130612
  Receipt Date: 20130612
  Transmission Date: 20140414
  Serious: Yes (Other)
  Sender: FDA-Public Use
  Company Number: NL-ROCHE-1231780

PATIENT
  Sex: 0

DRUGS (2)
  1. CAPECITABINE [Suspect]
     Indication: COLON CANCER STAGE III
     Route: 065
  2. OXALIPLATIN [Suspect]
     Indication: COLON CANCER STAGE III
     Route: 065

REACTIONS (10)
  - Cardiotoxicity [Unknown]
  - Haematotoxicity [Unknown]
  - Wound infection [Unknown]
  - Pneumonia [Unknown]
  - Urinary tract infection [Unknown]
  - Gastrointestinal toxicity [Unknown]
  - Toxicity to various agents [Unknown]
  - Cardiotoxicity [Unknown]
  - Embolism [Unknown]
  - Neurotoxicity [Unknown]
